FAERS Safety Report 10157753 (Version 3)
Quarter: 2014Q2

REPORT INFORMATION
  Report Type: Report from Study
  Country: US (occurrence: US)
  Receive Date: 20140507
  Receipt Date: 20140523
  Transmission Date: 20141212
  Serious: Yes (Death, Hospitalization)
  Sender: FDA-Public Use
  Company Number: US-ACTELION-A-US2014-96595

PATIENT
  Age: 9 Month
  Sex: Female

DRUGS (2)
  1. TRACLEER [Suspect]
     Indication: PULMONARY ARTERIAL HYPERTENSION
     Dosage: UNK
     Route: 048
     Dates: start: 201311
  2. SILDENAFIL [Concomitant]

REACTIONS (6)
  - Ebstein^s anomaly [Fatal]
  - Sepsis [Unknown]
  - Shunt occlusion [Unknown]
  - Blood pressure decreased [Unknown]
  - Malaise [Unknown]
  - Condition aggravated [Unknown]
